FAERS Safety Report 8586687 (Version 4)
Quarter: 2013Q1

REPORT INFORMATION
  Report Type: Spontaneous
  Country: US (occurrence: US)
  Receive Date: 20120530
  Receipt Date: 20130111
  Transmission Date: 20140127
  Serious: Yes (Other)
  Sender: FDA-Public Use
  Company Number: US-ASTRAZENECA-2012SE34019

PATIENT
  Age: 62 Year
  Sex: Male

DRUGS (5)
  1. NEXIUM [Suspect]
     Route: 048
  2. PRILOSEC [Suspect]
     Route: 048
  3. CRESTOR [Suspect]
     Indication: BLOOD CHOLESTEROL ABNORMAL
     Route: 048
  4. COREG [Concomitant]
  5. PLAVIX [Concomitant]

REACTIONS (9)
  - Myocardial infarction [Unknown]
  - Hypoaesthesia [Unknown]
  - Abasia [Unknown]
  - Dyspepsia [Unknown]
  - Joint lock [Unknown]
  - Blood cholesterol increased [Unknown]
  - Pain in extremity [Unknown]
  - Intentional drug misuse [Unknown]
  - Drug dose omission [Unknown]
